FAERS Safety Report 7352435-5 (Version None)
Quarter: 2011Q1

REPORT INFORMATION
  Report Type: 
  Country: None (occurrence: None)
  Receive Date: 20110301
  Receipt Date: 20100308
  Transmission Date: 20110831
  Serious: Yes (Other)
  Sender: FDA-Public Use
  Company Number: 227083USA

PATIENT
  Age: 57 Year
  Sex: Male

DRUGS (4)
  1. SALBUTAMOL [Concomitant]
  2. MIRTAZAPINE [Suspect]
     Dosage: 7.5 MG TO 15 MG HS PRN
     Dates: end: 20090101
  3. MOMETASONE FUROATE [Concomitant]
  4. DIAZEPAM [Concomitant]

REACTIONS (3)
  - ENZYME ABNORMALITY [None]
  - PANCREATITIS [None]
  - ABDOMINAL PAIN [None]
